FAERS Safety Report 25496014 (Version 3)
Quarter: 2025Q3

REPORT INFORMATION
  Report Type: Spontaneous
  Country: US (occurrence: US)
  Receive Date: 20250630
  Receipt Date: 20250917
  Transmission Date: 20251021
  Serious: No
  Sender: DR REDDYS
  Company Number: US-DRL-USA-USA/2025/06/008147

PATIENT

DRUGS (1)
  1. HABITROL [Suspect]
     Active Substance: NICOTINE
     Indication: Ex-tobacco user
     Route: 065
     Dates: start: 20250526

REACTIONS (6)
  - Drug ineffective [Unknown]
  - Product adhesion issue [Unknown]
  - Incorrect dose administered [Unknown]
  - Application site vesicles [Unknown]
  - Application site pruritus [Unknown]
  - Application site discolouration [Unknown]
